FAERS Safety Report 13822503 (Version 2)
Quarter: 2018Q2

REPORT INFORMATION
  Report Type: Report from Study
  Country: FR (occurrence: FR)
  Receive Date: 20170801
  Receipt Date: 20180503
  Transmission Date: 20180711
  Serious: Yes (Disabling)
  Sender: FDA-Public Use
  Company Number: FR-BRISTOL-MYERS SQUIBB COMPANY-BMS-2017-064614

PATIENT
  Sex: Male

DRUGS (1)
  1. ABATACEPT [Suspect]
     Active Substance: ABATACEPT
     Indication: RHEUMATOID ARTHRITIS
     Dosage: 125 MG, QWK
     Route: 058
     Dates: start: 20151216, end: 20180321

REACTIONS (3)
  - Influenza [Recovered/Resolved]
  - Back pain [Not Recovered/Not Resolved]
  - Intervertebral disc degeneration [Unknown]

NARRATIVE: CASE EVENT DATE: 201606
